FAERS Safety Report 7386471-X (Version None)
Quarter: 2011Q1

REPORT INFORMATION
  Report Type: 
  Country: None (occurrence: None)
  Receive Date: 20110329
  Receipt Date: 20110329
  Transmission Date: 20110831
  Serious: Yes (Life-Threatening, Hospitalization)
  Sender: FDA-Public Use
  Company Number: None

PATIENT
  Age: 82 Year
  Sex: Female
  Weight: 119.296 kg

DRUGS (1)
  1. PRADAXA [Suspect]
     Indication: ATRIAL FIBRILLATION
     Dosage: ONE CAPSULE TWICE A DAY
     Dates: start: 20110101, end: 20110309

REACTIONS (3)
  - REFUSAL OF TREATMENT BY PATIENT [None]
  - HAEMATOCRIT DECREASED [None]
  - HAEMORRHAGE [None]
